FAERS Safety Report 25006759 (Version 2)
Quarter: 2025Q1

REPORT INFORMATION
  Report Type: Spontaneous
  Country: GB (occurrence: GB)
  Receive Date: 20250225
  Receipt Date: 20250307
  Transmission Date: 20250408
  Serious: Yes (Death, Hospitalization, Other)
  Sender: EXELIXIS
  Company Number: GB-IPSEN Group, Research and Development-2025-03082

PATIENT
  Age: 18 Year
  Sex: Male
  Weight: 61 kg

DRUGS (25)
  1. CABOMETYX [Suspect]
     Active Substance: CABOZANTINIB S-MALATE
     Indication: Desmoplastic small round cell tumour
     Dosage: 60 MG, QD
     Route: 048
     Dates: start: 20241104, end: 20250130
  2. CABOMETYX [Suspect]
     Active Substance: CABOZANTINIB S-MALATE
     Indication: Off label use
  3. ACETAMINOPHEN [Suspect]
     Active Substance: ACETAMINOPHEN
     Indication: Pain
     Dosage: 5 G, QD
     Route: 065
     Dates: start: 20250120
  4. ACETAMINOPHEN [Suspect]
     Active Substance: ACETAMINOPHEN
     Indication: Headache
     Dosage: 10 TABLETS
     Route: 065
     Dates: start: 20250130, end: 20250203
  5. PREGABALIN [Concomitant]
     Active Substance: PREGABALIN
     Indication: Pain in extremity
     Dates: start: 202411
  6. DOCUSATE [Concomitant]
     Active Substance: DOCUSATE
     Indication: Constipation
  7. IBUPROFEN [Concomitant]
     Active Substance: IBUPROFEN
     Indication: Pain
     Dates: start: 20250129
  8. MOVICOL [Concomitant]
     Active Substance: POLYETHYLENE GLYCOL 3350\POTASSIUM CHLORIDE\SODIUM BICARBONATE\SODIUM CHLORIDE
     Indication: Constipation
     Dates: start: 20250120
  9. MORPHINE SULFATE [Concomitant]
     Active Substance: MORPHINE SULFATE
     Route: 058
  10. CYCLIZINE [Concomitant]
     Active Substance: CYCLIZINE
     Route: 058
  11. LIDOCAINE [Concomitant]
     Active Substance: LIDOCAINE
  12. FUROSEMIDE [Concomitant]
     Active Substance: FUROSEMIDE
     Dosage: 20 MG, QD
  13. GLYCOPYRROLATE [Concomitant]
     Active Substance: GLYCOPYRROLATE
  14. BUTYLSCOPOLAMINE BROMIDE [Concomitant]
     Active Substance: BUTYLSCOPOLAMINE BROMIDE
  15. LANSOPRAZOLE [Concomitant]
     Active Substance: LANSOPRAZOLE
     Dosage: 30 MG, QD
  16. LEVOMEPROMAZINE [Concomitant]
     Active Substance: LEVOMEPROMAZINE
  17. PREGABALIN [Concomitant]
     Active Substance: PREGABALIN
  18. PREGABALIN [Concomitant]
     Active Substance: PREGABALIN
  19. POLYETHYLENE GLYCOL 3350\POTASSIUM CHLORIDE\SODIUM BICARBONATE\SODIUM [Concomitant]
     Active Substance: POLYETHYLENE GLYCOL 3350\POTASSIUM CHLORIDE\SODIUM BICARBONATE\SODIUM CHLORIDE
     Dosage: UNK, BID
  20. DOCUSATE SODIUM [Concomitant]
     Active Substance: DOCUSATE SODIUM
  21. DEXAMETHASONE [Concomitant]
     Active Substance: DEXAMETHASONE
     Dosage: 4 MG, QD
  22. LOPERAMIDE [Concomitant]
     Active Substance: LOPERAMIDE
  23. LORAZEPAM [Concomitant]
     Active Substance: LORAZEPAM
  24. MIDAZOLAM [Concomitant]
     Active Substance: MIDAZOLAM
  25. MORPHINE SULFATE [Concomitant]
     Active Substance: MORPHINE SULFATE

REACTIONS (4)
  - Jaundice cholestatic [Unknown]
  - Malignant neoplasm progression [Fatal]
  - Pancreatitis acute [Recovered/Resolved]
  - Off label use [Unknown]

NARRATIVE: CASE EVENT DATE: 20241104
